FAERS Safety Report 10716823 (Version 1)
Quarter: 2015Q1

REPORT INFORMATION
  Report Type: Spontaneous
  Country: NO (occurrence: NO)
  Receive Date: 20150116
  Receipt Date: 20150116
  Transmission Date: 20150721
  Serious: Yes (Other)
  Sender: FDA-Public Use
  Company Number: NO-PFIZER INC-2014351737

PATIENT
  Age: 74 Year
  Sex: Male

DRUGS (8)
  1. TRIATEC [Concomitant]
     Active Substance: RAMIPRIL
     Indication: HYPERTENSION
     Dosage: 10 MG X 1
  2. TRIATEC [Concomitant]
     Active Substance: RAMIPRIL
     Indication: HYPOKALAEMIA
  3. NORVASC [Concomitant]
     Active Substance: AMLODIPINE BESYLATE
     Indication: HYPOKALAEMIA
  4. NORVASC [Concomitant]
     Active Substance: AMLODIPINE BESYLATE
     Indication: HYPERTENSION
     Dosage: 10 MG X 1
  5. ALDACTONE [Suspect]
     Active Substance: SPIRONOLACTONE
     Indication: HYPOKALAEMIA
     Dosage: 25 MG, UNK
     Route: 048
     Dates: start: 20140731, end: 20140825
  6. ALDACTONE [Suspect]
     Active Substance: SPIRONOLACTONE
     Indication: HYPERTENSION
  7. COZAAR [Concomitant]
     Active Substance: LOSARTAN POTASSIUM
     Indication: HYPERTENSION
     Dosage: 100 X 1
  8. COZAAR [Concomitant]
     Active Substance: LOSARTAN POTASSIUM
     Indication: HYPOKALAEMIA

REACTIONS (5)
  - Primary hyperaldosteronism [Recovered/Resolved]
  - Neuroendocrine carcinoma [Recovered/Resolved]
  - Gynaecomastia [Recovered/Resolved]
  - Drug intolerance [Recovered/Resolved]
  - Erectile dysfunction [Recovered/Resolved]
